FAERS Safety Report 6696750-7 (Version None)
Quarter: 2010Q2

REPORT INFORMATION
  Report Type: 
  Country: None (occurrence: None)
  Receive Date: 20100426
  Receipt Date: 20100414
  Transmission Date: 20101027
  Serious: Yes (Hospitalization)
  Sender: FDA-Public Use
  Company Number: AU-ELI_LILLY_AND_COMPANY-AU201004003723

PATIENT
  Sex: Male

DRUGS (9)
  1. GEMCITABINE HCL [Suspect]
     Indication: PANCREATIC CARCINOMA
     Dosage: 1950 MG, UNKNOWN
     Route: 065
     Dates: start: 20100120
  2. PACLITAXEL [Suspect]
     Indication: PANCREATIC CARCINOMA
     Dosage: 244 MG, UNKNOWN
     Route: 065
     Dates: start: 20100120
  3. ACCUPRIL [Concomitant]
     Indication: HYPERTENSION
     Route: 048
     Dates: start: 20040101
  4. ATORVASTATIN [Concomitant]
     Indication: HYPERCHOLESTEROLAEMIA
     Dates: start: 20040101
  5. GENTAMICIN [Concomitant]
     Indication: PYREXIA
     Route: 048
     Dates: start: 20100311
  6. TIMENTIN [Concomitant]
     Indication: PYREXIA
     Route: 042
     Dates: start: 20100313
  7. OMEPRAZOLE [Concomitant]
     Indication: DYSPEPSIA
     Route: 048
     Dates: start: 20100314
  8. VENTOLIN [Concomitant]
     Indication: LOWER RESPIRATORY TRACT INFECTION
     Dates: start: 20100314
  9. AZITHROMYCIN [Concomitant]
     Indication: PYREXIA
     Dates: start: 20100315

REACTIONS (1)
  - ABDOMINAL DISCOMFORT [None]
